FAERS Safety Report 16329728 (Version 1)
Quarter: 2019Q2

REPORT INFORMATION
  Report Type: Spontaneous
  Country: US (occurrence: US)
  Receive Date: 20190520
  Receipt Date: 20190520
  Transmission Date: 20190711
  Serious: No
  Sender: FDA-Public Use
  Company Number: US-APOTEX-2019AP012537

PATIENT
  Age: 68 Year
  Sex: Female

DRUGS (4)
  1. KETOROLAC TROMETHAMINE. [Suspect]
     Active Substance: KETOROLAC TROMETHAMINE
     Indication: CATARACT OPERATION
     Dosage: 1 GTT, TID (1 DROP IN RIGHT EYE, 3X A DAY)
     Route: 047
     Dates: start: 20190407
  2. OFLOXACIN. [Concomitant]
     Active Substance: OFLOXACIN
     Indication: CATARACT
     Dosage: UNK
     Route: 047
  3. TIMOLOL MALEATE. [Concomitant]
     Active Substance: TIMOLOL MALEATE
     Indication: CATARACT
     Dosage: UNK
     Route: 047
  4. PREDNISOLONE. [Concomitant]
     Active Substance: PREDNISOLONE
     Indication: CATARACT
     Dosage: UNK
     Route: 047

REACTIONS (2)
  - Eye pain [Not Recovered/Not Resolved]
  - Eye irritation [Not Recovered/Not Resolved]

NARRATIVE: CASE EVENT DATE: 20190407
